FAERS Safety Report 4577064-8 (Version None)
Quarter: 2005Q1

REPORT INFORMATION
  Report Type: 
  Country: None (occurrence: None)
  Receive Date: 20050210
  Receipt Date: 20040720
  Transmission Date: 20050727
  Serious: Yes (Hospitalization)
  Sender: FDA-Public Use
  Company Number: US-MERCK-0407USA01753

PATIENT
  Age: 44 Year
  Sex: Male
  Weight: 92 kg

DRUGS (21)
  1. VIOXX [Suspect]
     Indication: ARTHRITIS
     Route: 065
     Dates: start: 19990920, end: 20010423
  2. VIOXX [Suspect]
     Route: 048
     Dates: start: 20020109
  3. PANCOF [Concomitant]
     Route: 065
  4. CELEXA [Concomitant]
     Route: 065
     Dates: start: 19990101, end: 20020101
  5. ZIAC [Concomitant]
     Route: 065
  6. ULTRAM [Concomitant]
     Route: 065
  7. CLARITIN [Concomitant]
     Route: 065
  8. PEPCID [Concomitant]
     Route: 048
  9. DIOVAN [Concomitant]
     Route: 065
     Dates: start: 20000101
  10. MARCOF EXPECTORANT [Concomitant]
     Route: 065
  11. ATROVENT [Concomitant]
     Route: 065
  12. NASACORT [Concomitant]
     Route: 065
  13. FOLIC ACID [Concomitant]
     Route: 065
  14. TEQUIN [Concomitant]
     Route: 065
  15. ALLFEN DM [Concomitant]
     Route: 065
  16. AVELOX [Concomitant]
     Route: 065
  17. ZYRTEC [Concomitant]
     Route: 065
  18. HYZAAR [Concomitant]
     Route: 048
  19. PROVENTIL [Concomitant]
     Route: 065
  20. SEREVENT [Concomitant]
     Route: 065
  21. RHINOCORT [Concomitant]
     Route: 065

REACTIONS (36)
  - ACUTE MYOCARDIAL INFARCTION [None]
  - ACUTE SINUSITIS [None]
  - ANGINA PECTORIS [None]
  - ASTHENIA [None]
  - BACK INJURY [None]
  - BACK PAIN [None]
  - BLOOD CHOLESTEROL INCREASED [None]
  - BONE PAIN [None]
  - CARDIAC FAILURE CONGESTIVE [None]
  - CARPAL TUNNEL SYNDROME [None]
  - CORONARY ARTERY DISEASE [None]
  - CORONARY ARTERY OCCLUSION [None]
  - DEPRESSION [None]
  - DILATATION ATRIAL [None]
  - DIZZINESS [None]
  - EMOTIONAL DISTRESS [None]
  - GLUCOSE TOLERANCE IMPAIRED [None]
  - HIGH DENSITY LIPOPROTEIN DECREASED [None]
  - INTERVERTEBRAL DISC DEGENERATION [None]
  - INTERVERTEBRAL DISC PROTRUSION [None]
  - MITRAL VALVE INCOMPETENCE [None]
  - NASOPHARYNGITIS [None]
  - NECK INJURY [None]
  - NECK PAIN [None]
  - NERVOUSNESS [None]
  - OTITIS MEDIA [None]
  - PAIN [None]
  - PAIN IN EXTREMITY [None]
  - PERIPHERAL NERVE DECOMPRESSION [None]
  - RADICULITIS [None]
  - RADICULITIS CERVICAL [None]
  - SPINAL COLUMN STENOSIS [None]
  - SPINAL OSTEOARTHRITIS [None]
  - SWELLING [None]
  - TRICUSPID VALVE INCOMPETENCE [None]
  - VENTRICULAR EXTRASYSTOLES [None]
